FAERS Safety Report 8380220-4 (Version None)
Quarter: 2012Q2

REPORT INFORMATION
  Report Type: 
  Country: None (occurrence: None)
  Receive Date: 20120523
  Receipt Date: 20120516
  Transmission Date: 20120825
  Serious: Yes (Hospitalization, Other)
  Sender: FDA-Public Use
  Company Number: PHHY2012DE027296

PATIENT
  Sex: Female

DRUGS (5)
  1. IBUPROFEN [Concomitant]
     Indication: TUMOUR PAIN
     Dosage: 600 MG, UNK
     Route: 048
  2. EVEROLIMUS [Suspect]
     Indication: METASTATIC RENAL CELL CARCINOMA
     Dosage: 10 MG, DAILY
     Route: 048
     Dates: start: 20100601, end: 20101101
  3. RAMIPRIL [Concomitant]
     Indication: HYPERTENSION
     Dosage: 1.25 MG, QD
     Route: 048
     Dates: start: 20070601, end: 20120301
  4. LEVOTHYROXINE SODIUM [Concomitant]
     Indication: HYPOTHYROIDISM
     Dosage: 75 UG, QD
     Route: 048
     Dates: start: 20070601
  5. DIPYRONE TAB [Concomitant]
     Indication: TUMOUR PAIN
     Dosage: UNK UKN, UNK
     Route: 048

REACTIONS (11)
  - CONCOMITANT DISEASE AGGRAVATED [None]
  - HYPERTHYROIDISM [None]
  - OEDEMA PERIPHERAL [None]
  - FATIGUE [None]
  - COUGH [None]
  - PNEUMONITIS [None]
  - DYSPNOEA [None]
  - PALMAR-PLANTAR ERYTHRODYSAESTHESIA SYNDROME [None]
  - CHEST DISCOMFORT [None]
  - HYPOTHYROIDISM [None]
  - STOMATITIS [None]
